FAERS Safety Report 11467159 (Version 1)
Quarter: 2015Q3

REPORT INFORMATION
  Report Type: Report from Study
  Country: US (occurrence: US)
  Receive Date: 20150908
  Receipt Date: 20150908
  Transmission Date: 20151125
  Serious: No
  Sender: FDA-Public Use
  Company Number: PHEH2015US013625

PATIENT
  Sex: Female
  Weight: 80.27 kg

DRUGS (1)
  1. GILENYA [Suspect]
     Active Substance: FINGOLIMOD HYDROCHLORIDE
     Indication: MULTIPLE SCLEROSIS
     Dosage: 0.5 MG, QD
     Route: 048
     Dates: start: 20150511

REACTIONS (7)
  - Feeling abnormal [Recovering/Resolving]
  - Weight decreased [Recovering/Resolving]
  - Hepatic enzyme increased [Unknown]
  - Fall [Recovering/Resolving]
  - Multiple sclerosis relapse [Recovering/Resolving]
  - Memory impairment [Recovering/Resolving]
  - Acne [Unknown]
